FAERS Safety Report 13451927 (Version 1)
Quarter: 2017Q2

REPORT INFORMATION
  Report Type: Report from Study
  Country: JP (occurrence: JP)
  Receive Date: 20170418
  Receipt Date: 20170418
  Transmission Date: 20170830
  Serious: Yes (Hospitalization)
  Sender: FDA-Public Use
  Company Number: PHJP2017JP000492

PATIENT
  Age: 68 Year
  Sex: Male
  Weight: 64.9 kg

DRUGS (7)
  1. CERTICAN [Suspect]
     Active Substance: EVEROLIMUS
     Indication: RENAL TRANSPLANT
     Dosage: 1.5 MG, UNK
     Route: 048
     Dates: start: 20150701, end: 20160404
  2. CICLOSPORIN [Concomitant]
     Active Substance: CYCLOSPORINE
     Indication: RENAL TRANSPLANT
     Dosage: 170 MG, UNK
     Route: 065
     Dates: start: 20150601
  3. CICLOSPORIN [Concomitant]
     Active Substance: CYCLOSPORINE
     Dosage: 120 MG, UNK
     Route: 065
     Dates: start: 20150805
  4. CICLOSPORIN [Concomitant]
     Active Substance: CYCLOSPORINE
     Dosage: 120 MG, UNK
     Route: 065
     Dates: start: 20151005
  5. MYCOPHENOLATE MOFETIL. [Concomitant]
     Active Substance: MYCOPHENOLATE MOFETIL
     Indication: RENAL TRANSPLANT
     Dosage: 1000 MG, UNK
     Route: 065
     Dates: start: 20160502
  6. CICLOSPORIN [Concomitant]
     Active Substance: CYCLOSPORINE
     Dosage: 120 MG, UNK
     Route: 065
     Dates: start: 20160502
  7. CICLOSPORIN [Concomitant]
     Active Substance: CYCLOSPORINE
     Dosage: 120 MG, UNK
     Route: 065
     Dates: start: 20151228

REACTIONS (1)
  - Gastrointestinal haemorrhage [Recovered/Resolved]

NARRATIVE: CASE EVENT DATE: 20160404
